FAERS Safety Report 5100832-0 (Version None)
Quarter: 2006Q3

REPORT INFORMATION
  Report Type: 
  Country: None (occurrence: None)
  Receive Date: 20060911
  Receipt Date: 20060831
  Transmission Date: 20061208
  Serious: Yes (Other)
  Sender: FDA-Public Use
  Company Number: US-JNJFOC-20060900278

PATIENT
  Sex: Male

DRUGS (16)
  1. REMICADE [Suspect]
     Route: 042
  2. REMICADE [Suspect]
     Indication: RHEUMATOID ARTHRITIS
     Route: 042
  3. AVAPRO [Concomitant]
  4. GLUCOVANCE [Concomitant]
     Dosage: 2.5/500 MG, TWICE DAILY
  5. TOPROL-XL [Concomitant]
  6. PREDNISONE [Concomitant]
  7. DYNACIRC CR [Concomitant]
  8. LASIX [Concomitant]
  9. POTASSIUM [Concomitant]
  10. HYDROCHLOROTHIAZIDE [Concomitant]
  11. OXYCODONE HCL [Concomitant]
  12. PRANDIN [Concomitant]
  13. AVANDIA [Concomitant]
  14. METHOTREXATE [Concomitant]
  15. PRAVACHOL [Concomitant]
  16. ZIPAN [Concomitant]

REACTIONS (2)
  - LUPUS-LIKE SYNDROME [None]
  - PLEURAL EFFUSION [None]
